FAERS Safety Report 5209262-4 (Version None)
Quarter: 2007Q1

REPORT INFORMATION
  Report Type: 
  Country: None (occurrence: None)
  Receive Date: 20070116
  Receipt Date: 20070115
  Transmission Date: 20070707
  Serious: Yes (Death, Other)
  Sender: FDA-Public Use
  Company Number: NO-BRISTOL-MYERS SQUIBB COMPANY-13642855

PATIENT
  Age: 74 Year
  Sex: Female

DRUGS (2)
  1. ETOPOSIDE [Suspect]
     Indication: LUNG CANCER METASTATIC
     Dates: start: 20061206, end: 20061208
  2. CARBOPLATIN [Suspect]
     Indication: LUNG CANCER METASTATIC
     Dates: start: 20061206, end: 20061206

REACTIONS (3)
  - ATRIAL FLUTTER [None]
  - DEATH [None]
  - NEUTROPENIC SEPSIS [None]
